FAERS Safety Report 17969381 (Version 2)
Quarter: 2020Q3

REPORT INFORMATION
  Report Type: Report from Study
  Country: CA (occurrence: CA)
  Receive Date: 20200701
  Receipt Date: 20200731
  Transmission Date: 20201103
  Serious: No
  Sender: FDA-Public Use
  Company Number: CA-JNJFOC-20200604707

PATIENT
  Age: 59 Year
  Sex: Male
  Weight: 55 kg

DRUGS (2)
  1. STELARA [Suspect]
     Active Substance: USTEKINUMAB
     Indication: PSORIASIS
     Route: 058
     Dates: start: 20191119
  2. STELARA [Suspect]
     Active Substance: USTEKINUMAB

REACTIONS (4)
  - Therapeutic product effect decreased [Unknown]
  - Device leakage [Unknown]
  - Syringe issue [Unknown]
  - Psoriasis [Unknown]
